FAERS Safety Report 8474150-7 (Version None)
Quarter: 2012Q2

REPORT INFORMATION
  Report Type: 
  Country: None (occurrence: None)
  Receive Date: 20120628
  Receipt Date: 20120622
  Transmission Date: 20120825
  Serious: No
  Sender: FDA-Public Use
  Company Number: US-PFIZER INC-2012151563

PATIENT
  Sex: Male

DRUGS (3)
  1. REVATIO [Suspect]
     Indication: PULMONARY FIBROSIS
     Dosage: UNK
  2. PREDNISONE [Suspect]
     Indication: PULMONARY FIBROSIS
     Dosage: 20 MG, UNK
  3. PREDNISONE [Suspect]
     Dosage: 10 MG, ALTERNATE DAY

REACTIONS (2)
  - MOOD SWINGS [None]
  - NERVOUSNESS [None]
